FAERS Safety Report 25776279 (Version 1)
Quarter: 2025Q3

REPORT INFORMATION
  Report Type: Spontaneous
  Country: US (occurrence: US)
  Receive Date: 20250909
  Receipt Date: 20250909
  Transmission Date: 20251020
  Serious: No
  Sender: DOMPE FARMACEUTICI
  Company Number: US-FARMAPROD-202502-0528

PATIENT
  Age: 91 Year
  Sex: Male
  Weight: 50.8 kg

DRUGS (17)
  1. OXERVATE [Suspect]
     Active Substance: CENEGERMIN-BKBJ
     Indication: Neurotrophic keratopathy
     Route: 047
     Dates: start: 20230504
  2. OXERVATE [Suspect]
     Active Substance: CENEGERMIN-BKBJ
     Dates: start: 20250211
  3. SINGULAIR [Concomitant]
     Active Substance: MONTELUKAST SODIUM
  4. ANASPAZ [Concomitant]
     Active Substance: HYOSCYAMINE SULFATE
  5. VITAMIN D3 [Concomitant]
     Active Substance: CHOLECALCIFEROL
  6. VITAMIN B COMPLEX [Concomitant]
     Active Substance: CYANOCOBALAMIN\DEXPANTHENOL\NIACINAMIDE\PYRIDOXINE HYDROCHLORIDE\RIBOFLAVIN 5^-PHOSPHATE SODIUM\THIA
  7. GABAPENTIN [Concomitant]
     Active Substance: GABAPENTIN
  8. LORAZEPAM [Concomitant]
     Active Substance: LORAZEPAM
  9. TRELEGY ELLIPTA [Concomitant]
     Active Substance: FLUTICASONE FUROATE\UMECLIDINIUM BROMIDE\VILANTEROL TRIFENATATE
  10. CARVEDILOL [Concomitant]
     Active Substance: CARVEDILOL
  11. AQUA-E [Concomitant]
  12. IPRATROPIUM BROMIDE [Concomitant]
     Active Substance: IPRATROPIUM BROMIDE
  13. ZIOPTAN [Concomitant]
     Active Substance: TAFLUPROST
  14. SIMVASTATIN [Concomitant]
     Active Substance: SIMVASTATIN
  15. LOSARTAN POTASSIUM [Concomitant]
     Active Substance: LOSARTAN POTASSIUM
  16. DEXILANT [Concomitant]
     Active Substance: DEXLANSOPRAZOLE
  17. AQUA-E [Concomitant]

REACTIONS (5)
  - Product dose omission issue [Unknown]
  - Eye pain [Unknown]
  - Eyelid pain [Not Recovered/Not Resolved]
  - Hordeolum [Not Recovered/Not Resolved]
  - Device use issue [Unknown]

NARRATIVE: CASE EVENT DATE: 20250212
